FAERS Safety Report 13301913 (Version 1)
Quarter: 2017Q1

REPORT INFORMATION
  Report Type: Spontaneous
  Country: US (occurrence: US)
  Receive Date: 20170307
  Receipt Date: 20170307
  Transmission Date: 20170428
  Serious: Yes (Other)
  Sender: FDA-Public Use
  Company Number: None

PATIENT
  Sex: Female

DRUGS (1)
  1. TACROLIMUS 1MG CAPSULES UNKNOWN [Suspect]
     Active Substance: TACROLIMUS
     Indication: TRANSPLANT
     Dosage: ONE CAPSULE TWICE DAILY BY MOUTH
     Route: 048
     Dates: start: 20151009

REACTIONS (1)
  - Skin cancer [None]
